FAERS Safety Report 10067596 (Version 2)
Quarter: 2014Q4

REPORT INFORMATION
  Report Type: Spontaneous
  Country: US (occurrence: None)
  Receive Date: 20140407
  Receipt Date: 20141113
  Transmission Date: 20150528
  Serious: Yes (Other)
  Sender: FDA-Public Use
  Company Number: 2014-US-003867

PATIENT
  Age: 55 Year
  Sex: Female

DRUGS (1)
  1. XYREM [Suspect]
     Active Substance: SODIUM OXYBATE
     Indication: COMPLEX REGIONAL PAIN SYNDROME
     Route: 048
     Dates: start: 200603

REACTIONS (3)
  - Ill-defined disorder [None]
  - Off label use [None]
  - Gallbladder disorder [None]
